FAERS Safety Report 8135173-0 (Version None)
Quarter: 2012Q1

REPORT INFORMATION
  Report Type: 
  Country: None (occurrence: None)
  Receive Date: 20120214
  Receipt Date: 20120210
  Transmission Date: 20120608
  Serious: No
  Sender: FDA-Public Use
  Company Number: US-PFIZER INC-2012037260

PATIENT
  Sex: Male
  Weight: 100 kg

DRUGS (4)
  1. LAMICTAL [Concomitant]
     Indication: MOOD SWINGS
  2. OXYCODONE [Concomitant]
     Indication: BACK PAIN
     Dosage: UNK
  3. EFFEXOR XR [Suspect]
     Indication: BIPOLAR DISORDER
     Dosage: 300 MG, DAILY
     Route: 048
     Dates: end: 20120201
  4. LAMICTAL [Concomitant]
     Indication: BIPOLAR DISORDER
     Dosage: 400 MG, DAILY

REACTIONS (5)
  - DRY MOUTH [None]
  - DIZZINESS [None]
  - VOMITING [None]
  - HEADACHE [None]
  - WITHDRAWAL SYNDROME [None]
